FAERS Safety Report 21898703 (Version 2)
Quarter: 2023Q2

REPORT INFORMATION
  Report Type: Report from Study
  Country: IE (occurrence: IE)
  Receive Date: 20230123
  Receipt Date: 20230512
  Transmission Date: 20230721
  Serious: No
  Sender: FDA-Public Use
  Company Number: IE-Merck Healthcare KGaA-9377958

PATIENT
  Sex: Female

DRUGS (3)
  1. TEPOTINIB [Suspect]
     Active Substance: TEPOTINIB
     Indication: Non-small cell lung cancer
     Dates: start: 20220808, end: 20220916
  2. TEPOTINIB [Suspect]
     Active Substance: TEPOTINIB
     Dates: start: 20220916, end: 20221201
  3. TEPOTINIB [Suspect]
     Active Substance: TEPOTINIB
     Dates: start: 20221201

REACTIONS (1)
  - Haemoptysis [Unknown]
